FAERS Safety Report 10735676 (Version 1)
Quarter: 2015Q1

REPORT INFORMATION
  Report Type: Spontaneous
  Country: FR (occurrence: FR)
  Receive Date: 20150126
  Receipt Date: 20150126
  Transmission Date: 20150721
  Serious: Yes (Hospitalization)
  Sender: FDA-Public Use
  Company Number: FR-PFIZER INC-2015020554

PATIENT
  Age: 71 Year
  Sex: Female

DRUGS (7)
  1. OFLOCET [Concomitant]
     Active Substance: OFLOXACIN
  2. FRAGMIN [Concomitant]
     Active Substance: DALTEPARIN SODIUM
  3. ZAMUDOL [Concomitant]
     Active Substance: TRAMADOL HYDROCHLORIDE
  4. TAHOR [Suspect]
     Active Substance: ATORVASTATIN CALCIUM
     Indication: HYPERCHOLESTEROLAEMIA
     Dosage: 1 DF, 1X/DAY
     Route: 048
     Dates: start: 20141204, end: 20141208
  5. LIORESAL [Suspect]
     Active Substance: BACLOFEN
     Dosage: 10 MG, 1X/DAY
     Route: 048
     Dates: start: 20141202, end: 20141209
  6. PERINDOPRIL [Concomitant]
     Active Substance: PERINDOPRIL
  7. DUPHALAC [Concomitant]
     Active Substance: LACTULOSE

REACTIONS (3)
  - Aspartate aminotransferase increased [Recovering/Resolving]
  - Blood lactate dehydrogenase increased [Recovering/Resolving]
  - Alanine aminotransferase increased [Recovering/Resolving]

NARRATIVE: CASE EVENT DATE: 20141208
